FAERS Safety Report 8258618-4 (Version None)
Quarter: 2012Q2

REPORT INFORMATION
  Report Type: 
  Country: None (occurrence: None)
  Receive Date: 20120403
  Receipt Date: 20120403
  Transmission Date: 20120825
  Serious: Yes (Death)
  Sender: FDA-Public Use
  Company Number: None

PATIENT
  Age: 55 Year
  Sex: Male
  Weight: 71.6683 kg

DRUGS (8)
  1. MIRALAX [Concomitant]
  2. OXYCODONE HCL [Concomitant]
  3. ALDACTONE [Concomitant]
  4. COMPAZINE [Concomitant]
  5. RIFAXIMIN [Concomitant]
  6. LACTULOSE [Concomitant]
  7. SILIPHOS (SYLBIN-PHOSPHATIDYLCHOLINE COMPLEX [Suspect]
     Indication: HEPATIC FUNCTION ABNORMAL
     Dosage: 666MG, TID, PO
     Route: 048
     Dates: start: 20100805, end: 20100912
  8. LASIX [Concomitant]

REACTIONS (1)
  - CARDIAC ARREST [None]
